FAERS Safety Report 18916946 (Version 4)
Quarter: 2021Q2

REPORT INFORMATION
  Report Type: Spontaneous
  Country: US (occurrence: US)
  Receive Date: 20210219
  Receipt Date: 20210409
  Transmission Date: 20210717
  Serious: Yes (Hospitalization, Congenital Anomaly, Other)
  Sender: FDA-Public Use
  Company Number: US-JNJFOC-20210226631

PATIENT
  Age: 34 Year
  Sex: Female

DRUGS (8)
  1. CENTRUM [MINERALS NOS;VITAMINS NOS] [Concomitant]
     Active Substance: MINERALS\VITAMINS
     Indication: VITAMIN SUPPLEMENTATION
  2. GLIPIZIDE. [Concomitant]
     Active Substance: GLIPIZIDE
  3. LEVOFLOXACIN. [Interacting]
     Active Substance: LEVOFLOXACIN
     Indication: TUBERCULOSIS
     Route: 065
  4. PRETOMANID [Interacting]
     Active Substance: PRETOMANID
     Indication: TUBERCULOSIS
     Route: 065
     Dates: start: 20200930
  5. METFORMIN [Concomitant]
     Active Substance: METFORMIN HYDROCHLORIDE
  6. PYRAZINAMIDE. [Interacting]
     Active Substance: PYRAZINAMIDE
     Indication: TUBERCULOSIS
     Route: 065
  7. CLARITIN [Concomitant]
     Active Substance: LORATADINE
     Indication: HYPERSENSITIVITY
  8. SIRTURO [Suspect]
     Active Substance: BEDAQUILINE FUMARATE
     Indication: TUBERCULOSIS
     Route: 048
     Dates: start: 20200930

REACTIONS (12)
  - Myocardial infarction [Unknown]
  - Haemoptysis [Unknown]
  - Dyspnoea [Unknown]
  - Intentional product use issue [Unknown]
  - Drug interaction [Unknown]
  - Eye infection [Not Recovered/Not Resolved]
  - Peripheral swelling [Unknown]
  - Neuropathy peripheral [Unknown]
  - Hypertension [Not Recovered/Not Resolved]
  - Heart rate irregular [Not Recovered/Not Resolved]
  - Chest pain [Unknown]
  - Off label use [Unknown]

NARRATIVE: CASE EVENT DATE: 20201001
